FAERS Safety Report 24030005 (Version 1)
Quarter: 2024Q2

REPORT INFORMATION
  Report Type: Spontaneous
  Country: US (occurrence: None)
  Receive Date: 20240628
  Receipt Date: 20240628
  Transmission Date: 20240716
  Serious: No
  Sender: FDA-Public Use
  Company Number: None

PATIENT
  Age: 59 Year
  Sex: Female

DRUGS (2)
  1. ENBREL [Suspect]
     Active Substance: BENZYL ALCOHOL\ETANERCEPT
     Indication: Osteoarthritis
     Dosage: 50 WEELY UNDER THE SKIN
     Route: 058
     Dates: start: 202406
  2. ENBREL [Suspect]
     Active Substance: BENZYL ALCOHOL\ETANERCEPT
     Indication: Ankylosing spondylitis

REACTIONS (3)
  - Injection site erythema [None]
  - Injection site swelling [None]
  - Injection site urticaria [None]

NARRATIVE: CASE EVENT DATE: 20240627
